FAERS Safety Report 9634268 (Version 1)
Quarter: 2013Q4

REPORT INFORMATION
  Report Type: Spontaneous
  Country: CA (occurrence: CA)
  Receive Date: 20131021
  Receipt Date: 20131021
  Transmission Date: 20140711
  Serious: Yes (Death)
  Sender: FDA-Public Use
  Company Number: CA-JNJFOC-20131009087

PATIENT
  Age: 61 Year
  Sex: Female

DRUGS (3)
  1. DOXORUBICIN [Suspect]
     Indication: BREAST CANCER
     Dosage: ON CYCLE  4
     Route: 065
  2. CYCLOPHOSPHAMIDE [Suspect]
     Indication: BREAST CANCER
     Dosage: ON CYCLE  4
     Route: 065
  3. PACLITAXEL [Suspect]
     Indication: BREAST CANCER
     Dosage: ON CYCLE  4
     Route: 065

REACTIONS (1)
  - Myocardial infarction [Fatal]
